FAERS Safety Report 7272211-1 (Version None)
Quarter: 2011Q1

REPORT INFORMATION
  Report Type: 
  Country: None (occurrence: None)
  Receive Date: 20110203
  Receipt Date: 20110121
  Transmission Date: 20110831
  Serious: Yes (Hospitalization, Other)
  Sender: FDA-Public Use
  Company Number: PHHY2010US82749

PATIENT
  Sex: Male

DRUGS (3)
  1. TASIGNA [Suspect]
     Dosage: UNK
     Dates: start: 20071113, end: 20100624
  2. TASIGNA [Suspect]
     Indication: CHRONIC MYELOID LEUKAEMIA
     Dosage: 300 MG, BID
     Route: 048
     Dates: start: 20101028
  3. DIOVAN [Suspect]
     Indication: HYPERTENSION
     Dosage: 320 MG, QD
     Route: 048
     Dates: start: 20100601, end: 20101201

REACTIONS (12)
  - LYMPH NODE PAIN [None]
  - FATIGUE [None]
  - RENAL FAILURE ACUTE [None]
  - LYMPHADENOPATHY [None]
  - DIZZINESS [None]
  - POLLAKIURIA [None]
  - INFLUENZA [None]
  - SOMNOLENCE [None]
  - URINARY HESITATION [None]
  - DYSPNOEA [None]
  - PNEUMONIA [None]
  - FEELING COLD [None]
